FAERS Safety Report 4285564-3 (Version None)
Quarter: 2004Q1

REPORT INFORMATION
  Report Type: 
  Country: None (occurrence: None)
  Receive Date: 20040204
  Receipt Date: 20040122
  Transmission Date: 20041129
  Serious: Yes (Hospitalization)
  Sender: FDA-Public Use
  Company Number: US-JNJFOC-20040104149

PATIENT
  Age: 46 Year
  Sex: Male
  Weight: 98 kg

DRUGS (4)
  1. DOXIL [Suspect]
     Indication: MULTIPLE MYELOMA
     Dosage: 40 MG/M2, 1 IN 28 DAY, INTRAVENOUS
     Route: 042
     Dates: start: 20030821
  2. VINCRISTINE [Suspect]
     Indication: MULTIPLE MYELOMA
     Dosage: 2 MG, 1 IN 28 DAY, INTRAVENOUS
     Route: 042
     Dates: start: 20030821
  3. DECADRON [Suspect]
     Indication: MULTIPLE MYELOMA
     Dosage: 40 MG, ORAL, DAILY X 4 DAYS EVERY 28 DAYS
     Dates: start: 20030821
  4. THALOMID [Suspect]
     Indication: MULTIPLE MYELOMA
     Dosage: 50-150 MG DAILY
     Dates: start: 20030821

REACTIONS (6)
  - ATELECTASIS [None]
  - DYSPNOEA [None]
  - OEDEMA PERIPHERAL [None]
  - PAIN IN EXTREMITY [None]
  - PLEURAL EFFUSION [None]
  - PULMONARY EMBOLISM [None]
